FAERS Safety Report 12118251 (Version 1)
Quarter: 2016Q1

REPORT INFORMATION
  Report Type: Report from Study
  Country: US (occurrence: US)
  Receive Date: 20160226
  Receipt Date: 20160226
  Transmission Date: 20160526
  Serious: Yes (Other)
  Sender: FDA-Public Use
  Company Number: US-AMGEN-USASL2016022928

PATIENT
  Age: 35 Year
  Sex: Female

DRUGS (1)
  1. ENBREL [Suspect]
     Active Substance: ETANERCEPT
     Indication: PRODUCT USED FOR UNKNOWN INDICATION
     Dosage: UNK
     Route: 065

REACTIONS (6)
  - Injection site pruritus [Unknown]
  - Pyrexia [Recovered/Resolved]
  - Injection site swelling [Recovered/Resolved]
  - Diabetes mellitus [Unknown]
  - Injection site urticaria [Recovered/Resolved]
  - Condition aggravated [Unknown]

NARRATIVE: CASE EVENT DATE: 2015
